FAERS Safety Report 16544248 (Version 2)
Quarter: 2019Q3

REPORT INFORMATION
  Report Type: Spontaneous
  Country: US (occurrence: US)
  Receive Date: 20190709
  Receipt Date: 20190710
  Transmission Date: 20191004
  Serious: No
  Sender: FDA-Public Use
  Company Number: US-PFIZER INC-2019282982

PATIENT
  Age: 64 Year
  Sex: Female
  Weight: 137 kg

DRUGS (2)
  1. ELELYSO [Suspect]
     Active Substance: TALIGLUCERASE ALFA
     Dosage: 8200 IU, UNK [8200 UNITS BY INFUSION EVERY TWO WEEKS]
     Dates: start: 20180524
  2. ELELYSO [Suspect]
     Active Substance: TALIGLUCERASE ALFA
     Indication: GAUCHER^S DISEASE
     Dosage: UNK

REACTIONS (2)
  - Off label use [Unknown]
  - Weight increased [Unknown]
